FAERS Safety Report 16528184 (Version 1)
Quarter: 2019Q3

REPORT INFORMATION
  Report Type: Spontaneous
  Country: US (occurrence: US)
  Receive Date: 20190704
  Receipt Date: 20190704
  Transmission Date: 20191004
  Serious: No
  Sender: FDA-Public Use
  Company Number: US-TEVA-2019-US-1069458

PATIENT
  Sex: Male

DRUGS (1)
  1. CLOZAPINE. [Suspect]
     Active Substance: CLOZAPINE
     Route: 065
     Dates: start: 20190318

REACTIONS (4)
  - Neutrophil count increased [Unknown]
  - White blood cell count increased [Unknown]
  - Limb injury [Unknown]
  - Infection [Unknown]
